FAERS Safety Report 15263127 (Version 1)
Quarter: 2018Q3

REPORT INFORMATION
  Report Type: Spontaneous
  Country: NL (occurrence: NL)
  Receive Date: 20180810
  Receipt Date: 20180810
  Transmission Date: 20181010
  Serious: Yes (Other)
  Sender: FDA-Public Use
  Company Number: NL-CONCORDIA PHARMACEUTICALS INC.-E2B_00015962

PATIENT
  Age: 63 Year
  Sex: Female
  Weight: 69 kg

DRUGS (6)
  1. OMEPRAZOL 20 MG [Concomitant]
     Active Substance: OMEPRAZOLE
     Dosage: 1DD1
  2. DICLOFENAC 50 MG [Concomitant]
     Active Substance: DICLOFENAC
     Dosage: 3DD1
  3. MOVICOLON [Concomitant]
     Active Substance: POLYETHYLENE GLYCOL 3350\POTASSIUM CHLORIDE\SODIUM BICARBONATE\SODIUM CHLORIDE
     Dosage: 2DD1
  4. PREDNISOLONE. [Suspect]
     Active Substance: PREDNISOLONE
     Indication: POLYMYALGIA RHEUMATICA
     Dosage: 1X PER DAG 1 CAPSULE
     Dates: start: 20180623
  5. METOPROLOL 50 MG [Concomitant]
     Active Substance: METOPROLOL
     Dosage: 1DD1
  6. SIMVASTATINE 20 MG [Concomitant]
     Dosage: 1DD1

REACTIONS (1)
  - Delirium [Unknown]

NARRATIVE: CASE EVENT DATE: 20180623
